FAERS Safety Report 24699472 (Version 1)
Quarter: 2024Q4

REPORT INFORMATION
  Report Type: Report from Study
  Country: EG (occurrence: None)
  Receive Date: 20241205
  Receipt Date: 20241205
  Transmission Date: 20250115
  Serious: Yes (Life-Threatening)
  Sender: UMEDICA LABS
  Company Number: EG-Umedica-000580

PATIENT

DRUGS (1)
  1. CARBAMAZEPINE [Suspect]
     Active Substance: CARBAMAZEPINE
     Indication: Mood swings
     Dosage: MEDIAN INGESTED DOSE WAS 1,600 MG

REACTIONS (2)
  - Toxicity to various agents [Unknown]
  - Off label use [Unknown]
